APPROVED DRUG PRODUCT: RAZADYNE
Active Ingredient: GALANTAMINE HYDROBROMIDE
Strength: 4MG/ML **Federal Register determination that product was not discontinued or withdrawn for safety or effectiveness reasons**
Dosage Form/Route: SOLUTION;ORAL
Application: N021224 | Product #001
Applicant: JANSSEN PHARMACEUTICALS INC
Approved: Jun 22, 2001 | RLD: No | RS: No | Type: DISCN